FAERS Safety Report 4313925-2 (Version None)
Quarter: 2004Q1

REPORT INFORMATION
  Report Type: 
  Country: None (occurrence: None)
  Receive Date: 20040305
  Receipt Date: 20040226
  Transmission Date: 20041129
  Serious: No
  Sender: FDA-Public Use
  Company Number: 2004UW03615

PATIENT
  Age: 58 Year
  Sex: Female

DRUGS (3)
  1. CRESTOR [Suspect]
     Dosage: 10 MG QD PO
     Route: 048
  2. ESTRACE [Concomitant]
  3. PROMETRIUM [Concomitant]

REACTIONS (5)
  - BLISTER [None]
  - DERMATITIS EXFOLIATIVE [None]
  - ERYTHEMA [None]
  - RASH PAPULAR [None]
  - SKIN WARM [None]
